FAERS Safety Report 24374404 (Version 5)
Quarter: 2024Q4

REPORT INFORMATION
  Report Type: Spontaneous
  Country: US (occurrence: US)
  Receive Date: 20240927
  Receipt Date: 20241108
  Transmission Date: 20250114
  Serious: No
  Sender: PFIZER
  Company Number: US-PFIZER INC-PV202400095132

PATIENT
  Age: 56 Year
  Sex: Male
  Weight: 81.1 kg

DRUGS (2)
  1. ADCETRIS [Suspect]
     Active Substance: BRENTUXIMAB VEDOTIN
     Indication: Follicular lymphoma
     Dosage: 97 MG, EVERY 2 WEEKS/EVERY 14 DAYS/97 MG (2 VIALS) EVERY 14 DAYS
     Route: 042
  2. ADCETRIS [Suspect]
     Active Substance: BRENTUXIMAB VEDOTIN
     Indication: Hodgkin^s disease

REACTIONS (2)
  - Weight fluctuation [Not Recovered/Not Resolved]
  - Off label use [Unknown]
